FAERS Safety Report 10266017 (Version 1)
Quarter: 2014Q2

REPORT INFORMATION
  Report Type: Spontaneous
  Country: CN (occurrence: CN)
  Receive Date: 20140627
  Receipt Date: 20140627
  Transmission Date: 20141212
  Serious: Yes (Disabling)
  Sender: FDA-Public Use
  Company Number: CN-BRISTOL-MYERS SQUIBB COMPANY-21074554

PATIENT
  Age: 34 Year
  Sex: Female
  Weight: 62 kg

DRUGS (1)
  1. BARACLUDE TABS [Suspect]
     Indication: CHRONIC HEPATITIS B
     Route: 048
     Dates: start: 20130310, end: 20130726

REACTIONS (1)
  - Breast atrophy [Recovered/Resolved with Sequelae]
